FAERS Safety Report 22356807 (Version 1)
Quarter: 2023Q2

REPORT INFORMATION
  Report Type: Spontaneous
  Country: ES (occurrence: ES)
  Receive Date: 20230523
  Receipt Date: 20230523
  Transmission Date: 20230722
  Serious: Yes (Life-Threatening, Hospitalization, Other)
  Sender: FDA-Public Use
  Company Number: None

PATIENT
  Age: 73 Year
  Sex: Male

DRUGS (1)
  1. KEYTRUDA [Suspect]
     Active Substance: PEMBROLIZUMAB
     Indication: Lung adenocarcinoma
     Dosage: 2MG/KG EVERY 21 DAYS, HAS RECEIVED 4 CYCLES
     Route: 042
     Dates: start: 20230215, end: 20230426

REACTIONS (1)
  - Immune-mediated encephalitis [Recovering/Resolving]

NARRATIVE: CASE EVENT DATE: 20230503
